FAERS Safety Report 11646910 (Version 3)
Quarter: 2016Q1

REPORT INFORMATION
  Report Type: Spontaneous
  Country: IT (occurrence: IT)
  Receive Date: 20151020
  Receipt Date: 20160212
  Transmission Date: 20160525
  Serious: Yes (Hospitalization)
  Sender: FDA-Public Use
  Company Number: PHHY2015IT134596

PATIENT
  Age: 26 Year
  Sex: Female

DRUGS (2)
  1. AUGMENTINE [Suspect]
     Active Substance: AMOXICILLIN\CLAVULANATE POTASSIUM
     Indication: PRODUCT USED FOR UNKNOWN INDICATION
     Dosage: 1 DF, ONCE/SINGLE
     Route: 048
     Dates: start: 20150702, end: 20150702
  2. CARBAMAZEPINE. [Suspect]
     Active Substance: CARBAMAZEPINE
     Indication: PRODUCT USED FOR UNKNOWN INDICATION
     Dosage: 800 MG, ONCE/SINGLE
     Route: 048
     Dates: start: 20150702, end: 20150702

REACTIONS (3)
  - Suicide attempt [Recovered/Resolved]
  - Drug abuse [Unknown]
  - Affective disorder [Unknown]

NARRATIVE: CASE EVENT DATE: 20150702
